FAERS Safety Report 23588484 (Version 1)
Quarter: 2024Q1

REPORT INFORMATION
  Report Type: Report from Study
  Country: US (occurrence: US)
  Receive Date: 20240302
  Receipt Date: 20240302
  Transmission Date: 20240410
  Serious: Yes (Other)
  Sender: FDA-Public Use
  Company Number: US-TAKEDA-2023TUS095616

PATIENT
  Age: 50 Year
  Sex: Female

DRUGS (1)
  1. VEDOLIZUMAB [Suspect]
     Active Substance: VEDOLIZUMAB
     Indication: Colitis ulcerative
     Dosage: 300 MILLIGRAM, Q4WEEKS
     Route: 042

REACTIONS (7)
  - Colitis ulcerative [Recovered/Resolved]
  - Anal incontinence [Unknown]
  - Weight decreased [Unknown]
  - Back disorder [Unknown]
  - Off label use [Unknown]
  - Illness [Unknown]
  - Pain [Unknown]

NARRATIVE: CASE EVENT DATE: 20230701
